FAERS Safety Report 11904846 (Version 2)
Quarter: 2016Q4

REPORT INFORMATION
  Report Type: Spontaneous
  Country: US (occurrence: US)
  Receive Date: 20160108
  Receipt Date: 20161213
  Transmission Date: 20170206
  Serious: No
  Sender: FDA-Public Use
  Company Number: US-ROCHE-1580075

PATIENT
  Sex: Female

DRUGS (1)
  1. ACTIVASE [Suspect]
     Active Substance: ALTEPLASE
     Indication: CEREBROVASCULAR ACCIDENT
     Route: 065
     Dates: start: 2015, end: 2015

REACTIONS (1)
  - Pregnancy [Unknown]
